FAERS Safety Report 7641214-7 (Version None)
Quarter: 2011Q3

REPORT INFORMATION
  Report Type: 
  Country: None (occurrence: None)
  Receive Date: 20110728
  Receipt Date: 20110722
  Transmission Date: 20111222
  Serious: Yes (Death)
  Sender: FDA-Public Use
  Company Number: PHHY2011BR66730

PATIENT
  Sex: Male

DRUGS (7)
  1. DIOVAN [Suspect]
     Dosage: 160 MG, UNK
  2. EXFORGE [Suspect]
     Dosage: 320 MG VALS AND 10 MG AMLO, UNK
  3. DIOVAN [Suspect]
     Dosage: 320 MG, UNK
  4. EXFORGE [Suspect]
     Dosage: 160 MG VALS AND 5 MG AMLO, UNK
  5. EXFORGE [Suspect]
     Dosage: 160 MG VALS AND 5 MG AMLO, UNK
  6. EXFORGE [Suspect]
     Dosage: 320 MG VALS AND 5 MG AMLO, UNK
  7. DIOVAN HCT [Suspect]
     Dosage: 160 MG VALS AND 12.5 MG HCT, UNK

REACTIONS (1)
  - DEATH [None]
